FAERS Safety Report 5920217-4 (Version None)
Quarter: 2008Q4

REPORT INFORMATION
  Report Type: 
  Country: None (occurrence: None)
  Receive Date: 20081016
  Receipt Date: 20071012
  Transmission Date: 20090506
  Serious: No
  Sender: FDA-Public Use
  Company Number: A0687535A

PATIENT
  Age: 8 Year
  Sex: Female

DRUGS (2)
  1. CEFTIN [Suspect]
     Route: 048
     Dates: start: 20071008, end: 20071008
  2. TYLENOL (CAPLET) [Concomitant]

REACTIONS (4)
  - AGITATION [None]
  - CRYING [None]
  - PANIC ATTACK [None]
  - TREMOR [None]
